FAERS Safety Report 9329872 (Version 1)
Quarter: 2013Q2

REPORT INFORMATION
  Report Type: Spontaneous
  Country: US (occurrence: US)
  Receive Date: 20130604
  Receipt Date: 20130604
  Transmission Date: 20140414
  Serious: No
  Sender: FDA-Public Use
  Company Number: US-SANOFI-AVENTIS-2013SA004913

PATIENT
  Age: 58 Year
  Sex: Female

DRUGS (4)
  1. LANTUS SOLOSTAR [Suspect]
     Indication: TYPE 2 DIABETES MELLITUS
     Dosage: DOSE:20 UNIT(S)
     Route: 051
     Dates: start: 20121229
  2. LANTUS SOLOSTAR [Suspect]
     Indication: TYPE 2 DIABETES MELLITUS
     Dosage: DOSE:20 UNIT(S)
     Route: 051
     Dates: start: 20121229
  3. SOLOSTAR [Suspect]
     Indication: TYPE 2 DIABETES MELLITUS
     Dates: start: 20121229
  4. ALL OTHER THERAPEUTIC PRODUCTS [Concomitant]

REACTIONS (10)
  - Dizziness [Unknown]
  - Feeling abnormal [Unknown]
  - Visual impairment [Unknown]
  - Visual acuity reduced [Unknown]
  - Weight increased [Unknown]
  - Malaise [Unknown]
  - Blood glucose increased [Unknown]
  - Injection site pain [Unknown]
  - Incorrect dose administered [Unknown]
  - Incorrect storage of drug [Unknown]
